FAERS Safety Report 7818698-4 (Version None)
Quarter: 2011Q4

REPORT INFORMATION
  Report Type: 
  Country: None (occurrence: None)
  Receive Date: 20111018
  Receipt Date: 20111011
  Transmission Date: 20120403
  Serious: No
  Sender: FDA-Public Use
  Company Number: US-BIOGENIDEC-2011BI038871

PATIENT
  Sex: Female

DRUGS (4)
  1. AVONEX [Suspect]
     Indication: MULTIPLE SCLEROSIS
     Route: 030
     Dates: start: 19961001, end: 20031001
  2. AVONEX [Suspect]
     Route: 030
     Dates: start: 20031001, end: 20040101
  3. AVONEX [Suspect]
     Route: 030
     Dates: start: 20040101
  4. TYLENOL-500 [Concomitant]
     Indication: PREMEDICATION
     Dates: start: 19960101

REACTIONS (5)
  - URINARY INCONTINENCE [None]
  - MEMORY IMPAIRMENT [None]
  - INFLUENZA LIKE ILLNESS [None]
  - URINARY TRACT INFECTION [None]
  - NAUSEA [None]
